FAERS Safety Report 4518325-8 (Version None)
Quarter: 2004Q4

REPORT INFORMATION
  Report Type: 
  Country: None (occurrence: None)
  Receive Date: 20041203
  Receipt Date: 20020213
  Transmission Date: 20050328
  Serious: Yes (Life-Threatening, Hospitalization)
  Sender: FDA-Public Use
  Company Number: FR-ABBOTT-03P-056-0210750-00

PATIENT
  Age: 76 Year
  Sex: Male

DRUGS (16)
  1. CLARITHROMYCIN [Suspect]
     Indication: GASTRITIS
  2. CLARITHROMYCIN [Suspect]
     Indication: HELICOBACTER INFECTION
  3. COLCHICINE [Interacting]
     Indication: FAMILIAL MEDITERRANEAN FEVER
  4. COLCHICINE [Interacting]
  5. COLCHICINE [Interacting]
  6. COLCHICINE [Interacting]
  7. COLCHICINE [Interacting]
  8. OMEPRAZOLE [Concomitant]
     Indication: GASTRITIS
  9. OMEPRAZOLE [Concomitant]
     Indication: HELICOBACTER INFECTION
  10. AMOXICILLIN [Concomitant]
     Indication: GASTRITIS
  11. AMOXICILLIN [Concomitant]
     Indication: HELICOBACTER INFECTION
  12. ACEBUTOLOL [Concomitant]
     Indication: DRUG USE FOR UNKNOWN INDICATION
  13. RAMIPRIL [Concomitant]
     Indication: DRUG USE FOR UNKNOWN INDICATION
  14. SPIRONOLACTONE [Concomitant]
     Indication: DRUG USE FOR UNKNOWN INDICATION
  15. MOLSIDOMINE [Concomitant]
     Indication: DRUG USE FOR UNKNOWN INDICATION
  16. ACETYLSALICYLATE [Concomitant]
     Indication: DRUG USE FOR UNKNOWN INDICATION
     Dosage: LOW DOSAGES

REACTIONS (18)
  - ALOPECIA [None]
  - BLOOD BICARBONATE ABNORMAL [None]
  - C-REACTIVE PROTEIN INCREASED [None]
  - CHOLESTASIS [None]
  - DEHYDRATION [None]
  - DIARRHOEA [None]
  - DIARRHOEA HAEMORRHAGIC [None]
  - DRUG INTERACTION [None]
  - DRUG TOXICITY [None]
  - HAEMATURIA [None]
  - HYPONATRAEMIA [None]
  - MUCOSAL DRYNESS [None]
  - PANCREATITIS [None]
  - PANCYTOPENIA [None]
  - PROTEINURIA [None]
  - PYREXIA [None]
  - RENAL FAILURE [None]
  - SKIN WRINKLING [None]
